FAERS Safety Report 7238990-4 (Version None)
Quarter: 2011Q1

REPORT INFORMATION
  Report Type: 
  Country: None (occurrence: None)
  Receive Date: 20110121
  Receipt Date: 20110118
  Transmission Date: 20110831
  Serious: Yes (Death)
  Sender: FDA-Public Use
  Company Number: GR-PFIZER INC-2011005493

PATIENT
  Age: 87 Year
  Sex: Male
  Weight: 65 kg

DRUGS (5)
  1. AVELOX [Suspect]
     Indication: ABDOMINAL INFECTION
     Dosage: 400 MG, 1X/DAY
     Route: 042
     Dates: start: 20090925, end: 20091005
  2. FLAGYL [Suspect]
     Indication: ABDOMINAL INFECTION
     Dosage: 500 MG, 3X/DAY
     Route: 042
     Dates: start: 20090916, end: 20091005
  3. ROCEPHIN [Suspect]
     Indication: ABDOMINAL INFECTION
     Dosage: 1 G, 2X/DAY
     Route: 042
     Dates: start: 20090916, end: 20090921
  4. COLISTIN [Suspect]
     Indication: ABDOMINAL INFECTION
     Dosage: 1000000 UNK, 3X/DAY
     Route: 042
     Dates: start: 20090924, end: 20091005
  5. TARGOCID [Suspect]
     Indication: ABDOMINAL INFECTION
     Dosage: 400 MG, 2X/DAY
     Route: 042
     Dates: start: 20091001, end: 20091005

REACTIONS (1)
  - SEPSIS [None]
